FAERS Safety Report 5884302-8 (Version None)
Quarter: 2008Q3

REPORT INFORMATION
  Report Type: 
  Country: None (occurrence: None)
  Receive Date: 20080915
  Receipt Date: 20080902
  Transmission Date: 20090109
  Serious: Yes (Hospitalization)
  Sender: FDA-Public Use
  Company Number: PHHO1996CA03661

PATIENT
  Sex: Male
  Weight: 57 kg

DRUGS (1)
  1. NEORAL [Suspect]
     Route: 048
     Dates: start: 19960514

REACTIONS (3)
  - HERPES SIMPLEX [None]
  - HYPERTENSION [None]
  - TRANSPLANT REJECTION [None]
